FAERS Safety Report 13756122 (Version 1)
Quarter: 2017Q3

REPORT INFORMATION
  Report Type: Spontaneous
  Country: SE (occurrence: SE)
  Receive Date: 20170714
  Receipt Date: 20170714
  Transmission Date: 20171127
  Serious: Yes (Other)
  Sender: FDA-Public Use
  Company Number: SE-AMGEN-SWESP2017104398

PATIENT
  Age: 77 Year
  Sex: Male

DRUGS (13)
  1. ARAVA [Concomitant]
     Active Substance: LEFLUNOMIDE
  2. KALCIPOS-D [Concomitant]
     Active Substance: CALCIUM CARBONATE\CHOLECALCIFEROL
  3. METOPROLOL. [Concomitant]
     Active Substance: METOPROLOL
  4. ALVEDON [Concomitant]
     Active Substance: ACETAMINOPHEN
  5. CANDESARTAN. [Concomitant]
     Active Substance: CANDESARTAN
  6. PROLIA [Suspect]
     Active Substance: DENOSUMAB
     Indication: OSTEOPOROSIS
     Dosage: 60 MG, UNK
     Route: 065
     Dates: start: 20150910
  7. TROMBYL [Concomitant]
     Active Substance: ASPIRIN
  8. FOLACIN [Concomitant]
     Active Substance: FOLIC ACID
  9. FUROSEMID [Concomitant]
     Active Substance: FUROSEMIDE
  10. METOJECT [Concomitant]
     Active Substance: METHOTREXATE SODIUM
  11. PREDNISOLON [Concomitant]
     Active Substance: PREDNISOLONE
  12. ACETYLCYSTEIN [Concomitant]
     Active Substance: ACETYLCYSTEINE
  13. DUROFERON [Concomitant]
     Active Substance: FERROUS SULFATE

REACTIONS (1)
  - Osteonecrosis [Not Recovered/Not Resolved]

NARRATIVE: CASE EVENT DATE: 20170531
